FAERS Safety Report 6718685-3 (Version None)
Quarter: 2010Q2

REPORT INFORMATION
  Report Type: 
  Country: None (occurrence: None)
  Receive Date: 20100506
  Receipt Date: 20100421
  Transmission Date: 20101027
  Serious: Yes (Hospitalization)
  Sender: FDA-Public Use
  Company Number: 008232

PATIENT
  Sex: Male
  Weight: 79.5 kg

DRUGS (21)
  1. CERTOLIZUMAB PEGOL [Suspect]
     Indication: RHEUMATOID ARTHRITIS
     Dosage: 200 MG 1X/2 WEEKS SUBCUTANEOUS
     Route: 058
     Dates: start: 20091101
  2. SULFASALAZOME [Concomitant]
  3. OXYCODONE [Concomitant]
  4. PREDNISONE [Concomitant]
  5. IPARTROPIUM [Concomitant]
  6. EQUATE /00002701/ [Concomitant]
  7. MUCINEX D [Concomitant]
  8. AZITHROMYCIN [Concomitant]
  9. KLOR-CON [Concomitant]
  10. NITROGLYCERIN [Concomitant]
  11. ASPIRIN [Concomitant]
  12. AMBIEN CR [Concomitant]
  13. ONDANSETRON [Concomitant]
  14. FUROSEMIDE [Concomitant]
  15. WARFARIN SODIUM [Concomitant]
  16. ALDENDRONAT [Concomitant]
  17. FOLIC ACID [Concomitant]
  18. CYCLOBENZAPRINE HCL [Concomitant]
  19. SOTALOL HCL [Concomitant]
  20. VITAMIN A [Concomitant]
  21. VENLAFAXINE [Concomitant]

REACTIONS (1)
  - PNEUMONIA STREPTOCOCCAL [None]
